FAERS Safety Report 5103015-3 (Version None)
Quarter: 2006Q3

REPORT INFORMATION
  Report Type: 
  Country: None (occurrence: None)
  Receive Date: 20060908
  Receipt Date: 20051027
  Transmission Date: 20061208
  Serious: Yes (Other)
  Sender: FDA-Public Use
  Company Number: 2005-10-1662

PATIENT
  Age: 33 Year
  Sex: Female

DRUGS (5)
  1. NASONEX [Suspect]
     Indication: PROPHYLAXIS
     Dosage: SEE IMAGE
     Route: 045
     Dates: start: 20050401, end: 20050501
  2. NASONEX [Suspect]
     Indication: PROPHYLAXIS
     Dosage: SEE IMAGE
     Route: 045
     Dates: start: 20050401, end: 20051026
  3. NASONEX [Suspect]
     Indication: PROPHYLAXIS
     Dosage: SEE IMAGE
     Route: 045
     Dates: start: 20050501, end: 20051026
  4. ASACOL [Concomitant]
  5. VITAMIN B-12 [Concomitant]

REACTIONS (2)
  - ABORTION SPONTANEOUS [None]
  - DRUG EXPOSURE DURING PREGNANCY [None]
